FAERS Safety Report 24248749 (Version 1)
Quarter: 2024Q3

REPORT INFORMATION
  Report Type: Spontaneous
  Country: US (occurrence: US)
  Receive Date: 20240826
  Receipt Date: 20240826
  Transmission Date: 20241016
  Serious: Yes (Hospitalization)
  Sender: TAKEDA
  Company Number: US-TAKEDA-2024TUS084693

PATIENT
  Age: 74 Year
  Sex: Female

DRUGS (1)
  1. ENTYVIO [Suspect]
     Active Substance: VEDOLIZUMAB
     Indication: Crohn^s disease
     Route: 042
     Dates: start: 20240731, end: 20240814

REACTIONS (4)
  - Infusion related reaction [Unknown]
  - Hot flush [Unknown]
  - Muscle spasms [Unknown]
  - Pyrexia [Unknown]

NARRATIVE: CASE EVENT DATE: 20240731
